FAERS Safety Report 23341389 (Version 2)
Quarter: 2024Q1

REPORT INFORMATION
  Report Type: Spontaneous
  Country: US (occurrence: US)
  Receive Date: 20231227
  Receipt Date: 20240326
  Transmission Date: 20240410
  Serious: No
  Sender: FDA-Public Use
  Company Number: US-BRISTOL-MYERS SQUIBB COMPANY-2023-188082

PATIENT
  Age: 53 Year
  Sex: Female

DRUGS (5)
  1. OPDIVO [Suspect]
     Active Substance: NIVOLUMAB
     Indication: Malignant connective tissue neoplasm
     Dosage: DOSE : OPDIVO: 240 MG; FREQ : OPDIVO: EVERY 2 WEEKS;
  2. YERVOY [Suspect]
     Active Substance: IPILIMUMAB
     Indication: Malignant connective tissue neoplasm
     Dosage: DOSE : OPDIVO: 240 MG; YERVOY: 60 MG;     FREQ : OPDIVO: EVERY 2 WEEKS; YERVOY: EVERY 2 WEEKS
  3. YERVOY [Suspect]
     Active Substance: IPILIMUMAB
     Dosage: YERVOY: 60 MG;     FREQ : YERVOY: EVERY 2 WEEKS
  4. PREGABALIN [Concomitant]
     Active Substance: PREGABALIN
     Indication: Product used for unknown indication
  5. NORTRIPTYLINE [Concomitant]
     Active Substance: NORTRIPTYLINE
     Indication: Product used for unknown indication

REACTIONS (1)
  - Off label use [Unknown]
